FAERS Safety Report 11915385 (Version 3)
Quarter: 2017Q1

REPORT INFORMATION
  Report Type: Spontaneous
  Country: US (occurrence: US)
  Receive Date: 20160114
  Receipt Date: 20170110
  Transmission Date: 20170428
  Serious: No
  Sender: FDA-Public Use
  Company Number: US-ASTRAZENECA-2016SE00599

PATIENT
  Age: 61 Year
  Sex: Male
  Weight: 90.7 kg

DRUGS (9)
  1. SYMBICORT [Suspect]
     Active Substance: BUDESONIDE\FORMOTEROL FUMARATE DIHYDRATE
     Indication: ASTHMA
     Dosage: TAKES 1 PUFF A DAY, OTHER TIMES HE TAKES 2 PUFFS IN THE EVENING ONLY
     Route: 055
     Dates: start: 2015
  2. RITALIN [Concomitant]
     Active Substance: METHYLPHENIDATE HYDROCHLORIDE
     Indication: CHANGE IN SUSTAINED ATTENTION
     Dosage: GENERIC; 20 MG TWO TIMES A DAY
     Route: 048
     Dates: start: 2002
  3. CHOLESTEROL MEDICATIONS [Concomitant]
     Active Substance: UNSPECIFIED INGREDIENT
  4. SYMBICORT [Suspect]
     Active Substance: BUDESONIDE\FORMOTEROL FUMARATE DIHYDRATE
     Indication: ASTHMA
     Dosage: 160/4.5 MCG, 2 PUFFS TWICE DAILY
     Route: 055
     Dates: start: 2015
  5. GARLIC PILL [Concomitant]
     Dosage: 250.0MG AS REQUIRED
     Route: 048
  6. REQUIP [Concomitant]
     Active Substance: ROPINIROLE HYDROCHLORIDE
     Indication: RESTLESS LEGS SYNDROME
     Dosage: 2 MG ONE HALF PILL AT 7PM AND THE OTHER BEFORE BED
     Route: 048
     Dates: start: 2000
  7. HYDROCODONE WITH CODEINE [Concomitant]
     Indication: HEADACHE
     Dosage: 7.5/3.25 MG; AS REQUIRED
     Route: 048
     Dates: start: 2015
  8. VENTOLIN [Concomitant]
     Active Substance: ALBUTEROL SULFATE
  9. AMBIEN [Concomitant]
     Active Substance: ZOLPIDEM TARTRATE
     Indication: SLEEP DISORDER
     Route: 048
     Dates: start: 2002

REACTIONS (8)
  - Influenza [Unknown]
  - Extrasystoles [Unknown]
  - Anosmia [Not Recovered/Not Resolved]
  - Weight decreased [Unknown]
  - Dizziness [Unknown]
  - Upper respiratory tract infection [Unknown]
  - Intentional product misuse [Unknown]
  - Ageusia [Not Recovered/Not Resolved]

NARRATIVE: CASE EVENT DATE: 2015
